FAERS Safety Report 11165187 (Version 1)
Quarter: 2015Q2

REPORT INFORMATION
  Report Type: Spontaneous
  Country: ES (occurrence: ES)
  Receive Date: 20150604
  Receipt Date: 20150604
  Transmission Date: 20150821
  Serious: Yes (Hospitalization, Other)
  Sender: FDA-Public Use
  Company Number: ES-BAUSCH-BL-2015-014480

PATIENT
  Age: 51 Year
  Sex: Female

DRUGS (3)
  1. TELAPREVIR [Suspect]
     Active Substance: TELAPREVIR
     Indication: HEPATIC CIRRHOSIS
     Route: 065
  2. RIBAVIRIN. [Suspect]
     Active Substance: RIBAVIRIN
     Indication: HEPATIC CIRRHOSIS
     Route: 065
  3. INTERFERON [Suspect]
     Active Substance: INTERFERON
     Indication: HEPATIC CIRRHOSIS
     Route: 065

REACTIONS (5)
  - Renal failure [Fatal]
  - Bronchopulmonary aspergillosis [Fatal]
  - Pancytopenia [Not Recovered/Not Resolved]
  - Aplastic anaemia [Not Recovered/Not Resolved]
  - Hepatic failure [Fatal]
